FAERS Safety Report 10954611 (Version 1)
Quarter: 2015Q1

REPORT INFORMATION
  Report Type: Spontaneous
  Country: SE (occurrence: SE)
  Receive Date: 20150325
  Receipt Date: 20150325
  Transmission Date: 20150721
  Serious: Yes (Hospitalization)
  Sender: FDA-Public Use
  Company Number: SE-PFIZER INC-2015102296

PATIENT
  Age: 41 Year
  Sex: Female

DRUGS (6)
  1. IDOTRIM [Concomitant]
  2. GIONA EASYHALER [Concomitant]
  3. PROVERA [Suspect]
     Active Substance: MEDROXYPROGESTERONE ACETATE
     Indication: ENDOMETRIOSIS
     Dosage: 10 MG, 1X/DAY
     Dates: start: 201407
  4. PANODIL [Concomitant]
     Active Substance: ACETAMINOPHEN
  5. IPREN [Concomitant]
     Active Substance: IBUPROFEN
  6. PROPAVAN [Concomitant]
     Active Substance: PROPIOMAZINE
     Dosage: 25 MG, UNK

REACTIONS (2)
  - Depressed mood [Unknown]
  - Dyspnoea [Unknown]

NARRATIVE: CASE EVENT DATE: 201410
